FAERS Safety Report 5722460-6 (Version None)
Quarter: 2008Q2

REPORT INFORMATION
  Report Type: 
  Country: None (occurrence: None)
  Receive Date: 20080429
  Receipt Date: 20071127
  Transmission Date: 20081010
  Serious: No
  Sender: FDA-Public Use
  Company Number: US-ASTRAZENECA-2007UW27154

PATIENT
  Age: 72 Year
  Sex: Female
  Weight: 63.5 kg

DRUGS (10)
  1. NEXIUM [Suspect]
     Indication: GASTROOESOPHAGEAL REFLUX DISEASE
     Route: 048
     Dates: start: 20070701
  2. CRESTOR [Suspect]
     Route: 048
  3. PLAVIX [Concomitant]
  4. ASPIRIN [Concomitant]
  5. ESTRADIOL [Concomitant]
  6. RANEXA [Concomitant]
  7. LISINOPRIL [Concomitant]
  8. ISOSORBRAMONO [Concomitant]
  9. XANAX [Concomitant]
     Indication: SLEEP DISORDER
  10. MULTI-VITAMIN [Concomitant]

REACTIONS (2)
  - ALOPECIA [None]
  - MYALGIA [None]
